FAERS Safety Report 5922642-4 (Version None)
Quarter: 2008Q4

REPORT INFORMATION
  Report Type: 
  Country: None (occurrence: None)
  Receive Date: 20081017
  Receipt Date: 20081009
  Transmission Date: 20090506
  Serious: Yes (Other)
  Sender: FDA-Public Use
  Company Number: DE-ABBOTT-08P-062-0480950-00

PATIENT
  Sex: Female
  Weight: 92.2 kg

DRUGS (3)
  1. ESCITALOPRAM [Suspect]
     Indication: PSYCHOTIC DISORDER
     Route: 048
     Dates: start: 20080101, end: 20080801
  2. ESCITALOPRAM [Suspect]
     Route: 048
     Dates: start: 20080801
  3. GYNEFIX [Suspect]
     Indication: DRUG USE FOR UNKNOWN INDICATION

REACTIONS (3)
  - DIABETES MELLITUS [None]
  - OTITIS MEDIA [None]
  - PRE-ECLAMPSIA [None]
